FAERS Safety Report 15186208 (Version 2)
Quarter: 2019Q1

REPORT INFORMATION
  Report Type: Report from Study
  Country: US (occurrence: US)
  Receive Date: 20180723
  Receipt Date: 20190130
  Transmission Date: 20190417
  Serious: No
  Sender: FDA-Public Use
  Company Number: US-EXELIXIS-CABO-18013688

PATIENT
  Sex: Male

DRUGS (2)
  1. CABOMETYX [Suspect]
     Active Substance: CABOZANTINIB S-MALATE
     Indication: RENAL CANCER
     Dosage: 60 MG, QD (IN THE AFTERNOON WITHOUT FOOD)
     Route: 048
     Dates: start: 20180126
  2. XANAX [Concomitant]
     Active Substance: ALPRAZOLAM
     Dosage: UNK

REACTIONS (6)
  - Diarrhoea [Recovering/Resolving]
  - Hypertension [Recovering/Resolving]
  - Oral pain [Unknown]
  - Bone cancer [Unknown]
  - Erythema [Unknown]
  - Ageusia [Unknown]

NARRATIVE: CASE EVENT DATE: 2018
